FAERS Safety Report 14958163 (Version 1)
Quarter: 2018Q2

REPORT INFORMATION
  Report Type: Spontaneous
  Country: DE (occurrence: DE)
  Receive Date: 20180531
  Receipt Date: 20180531
  Transmission Date: 20180711
  Serious: Yes (Other)
  Sender: FDA-Public Use
  Company Number: PHHY2018DE011273

PATIENT
  Age: 75 Year
  Sex: Female
  Weight: 72.7 kg

DRUGS (21)
  1. PACLITAXEL. [Suspect]
     Active Substance: PACLITAXEL
     Dosage: 317 MG, Q3W
     Route: 042
     Dates: start: 20160210
  2. OMEPRAZOL [Concomitant]
     Active Substance: OMEPRAZOLE
     Indication: DIVERTICULUM
     Dosage: 1 UNK, QD
     Route: 048
     Dates: start: 201510
  3. PACLITAXEL. [Suspect]
     Active Substance: PACLITAXEL
     Dosage: 317 MG, Q3W
     Route: 042
     Dates: start: 20160323
  4. CARBOPLATIN. [Suspect]
     Active Substance: CARBOPLATIN
     Dosage: 425 MG, Q3W
     Route: 042
     Dates: start: 20160413
  5. DEKRISTOL [Concomitant]
     Active Substance: CHOLECALCIFEROL
     Indication: OSTEOPOROSIS
     Dosage: 40000 IU, Q3W
     Route: 048
     Dates: start: 20160203
  6. AVASTIN [Suspect]
     Active Substance: BEVACIZUMAB
     Indication: OVARIAN CANCER
     Dosage: 1080 MG, Q3W (THERAPY RESTARTED)
     Route: 042
  7. PACLITAXEL. [Suspect]
     Active Substance: PACLITAXEL
     Dosage: 317 MG, Q3W
     Route: 042
     Dates: start: 20160302
  8. SIMVASTATIN. [Concomitant]
     Active Substance: SIMVASTATIN
     Indication: HYPERCHOLESTEROLAEMIA
     Dosage: 1 UNK, QD
     Route: 048
     Dates: start: 2015
  9. DAFIRO [Concomitant]
     Active Substance: AMLODIPINE\VALSARTAN
     Indication: HYPERTENSION
     Dosage: 1 UNK, QD
     Route: 048
     Dates: start: 2015, end: 20160322
  10. L-THYROXIN [Concomitant]
     Active Substance: LEVOTHYROXINE SODIUM
     Indication: PRODUCT USED FOR UNKNOWN INDICATION
     Dosage: 1 UNK, QD
     Route: 048
     Dates: start: 2013
  11. CARBOPLATIN. [Suspect]
     Active Substance: CARBOPLATIN
     Indication: PRODUCT USED FOR UNKNOWN INDICATION
     Dosage: 425 MG, Q3W (SUBSEQUENT DOSE ON 10/FEB/2016)
     Route: 042
     Dates: start: 20160120
  12. CARBOPLATIN. [Suspect]
     Active Substance: CARBOPLATIN
     Dosage: 425 MG, Q3W
     Route: 042
     Dates: start: 20160210
  13. CARBOPLATIN. [Suspect]
     Active Substance: CARBOPLATIN
     Dosage: 425 MG, Q3W
     Route: 042
     Dates: start: 20160323
  14. CALCIGEN [Concomitant]
     Indication: OSTEOPOROSIS
     Dosage: 1200 MG, QD
     Route: 048
     Dates: start: 20160203
  15. NOVAMINSULFON [Concomitant]
     Active Substance: METAMIZOLE
     Indication: PAIN
     Dosage: 1500 MG, QD
     Route: 048
     Dates: start: 2015
  16. CARBOPLATIN. [Suspect]
     Active Substance: CARBOPLATIN
     Dosage: 425 MG, Q3W
     Route: 042
     Dates: start: 20160302
  17. AVASTIN [Suspect]
     Active Substance: BEVACIZUMAB
     Dosage: 1080 MG, Q3W (MOST RECENT DOSE PRIOR TO ANEMIA: 03/MAR/2016)
     Route: 042
     Dates: start: 20160211
  18. AVASTIN [Suspect]
     Active Substance: BEVACIZUMAB
     Dosage: 1080 MG, Q3W (THERAPY INTERRUPTED DUE TO WORSENING OF HYPERTENSION)
     Route: 042
     Dates: start: 20160303
  19. PACLITAXEL. [Suspect]
     Active Substance: PACLITAXEL
     Indication: OVARIAN CANCER
     Dosage: 317 MG, Q3W (SUBSEQUENT DOSE ON 10/FEB/2016)
     Route: 042
     Dates: start: 20160120
  20. DAFIRO [Concomitant]
     Active Substance: AMLODIPINE\VALSARTAN
     Dosage: 7.5 MG, QD
     Route: 048
     Dates: start: 20160323
  21. TORASEMIDE [Concomitant]
     Active Substance: TORSEMIDE
     Indication: HYPERTENSION
     Dosage: 10 MG, UNK
     Route: 048

REACTIONS (8)
  - Abdominal pain [Recovered/Resolved]
  - Skin disorder [Recovered/Resolved]
  - Dysgeusia [Recovered/Resolved]
  - Anaemia [Recovered/Resolved]
  - Constipation [Recovered/Resolved]
  - Hypertension [Recovered/Resolved]
  - Protein urine present [Not Recovered/Not Resolved]
  - Sensory disturbance [Recovered/Resolved]

NARRATIVE: CASE EVENT DATE: 20160210
